FAERS Safety Report 24680031 (Version 2)
Quarter: 2025Q3

REPORT INFORMATION
  Report Type: Spontaneous
  Country: US (occurrence: US)
  Receive Date: 20241129
  Receipt Date: 20250809
  Transmission Date: 20251020
  Serious: Yes (Other)
  Sender: ALEXION PHARMACEUTICALS
  Company Number: US-AstraZeneca-CH-00748225A

PATIENT
  Sex: Female

DRUGS (2)
  1. BRILINTA [Suspect]
     Active Substance: TICAGRELOR
     Indication: Myocardial infarction
  2. PREDNISONE [Concomitant]
     Active Substance: PREDNISONE

REACTIONS (12)
  - Myocardial infarction [Unknown]
  - Hernia [Unknown]
  - Hypersensitivity [Unknown]
  - Movement disorder [Unknown]
  - Product dose omission issue [Unknown]
  - Contusion [Unknown]
  - Dizziness [Unknown]
  - Off label use [Unknown]
  - Dyspnoea [Unknown]
  - Weight decreased [Unknown]
  - Blood cholesterol decreased [Unknown]
  - Dysphagia [Unknown]
